FAERS Safety Report 26005593 (Version 1)
Quarter: 2025Q4

REPORT INFORMATION
  Report Type: Report from Study
  Country: US (occurrence: US)
  Receive Date: 20251106
  Receipt Date: 20251106
  Transmission Date: 20260118
  Serious: Yes (Other)
  Sender: ALEXION PHARMACEUTICALS
  Company Number: A202309315

PATIENT
  Age: 61 Year
  Sex: Male

DRUGS (1)
  1. STRENSIQ [Suspect]
     Active Substance: ASFOTASE ALFA
     Indication: Phosphorus metabolism disorder
     Dosage: 160 MILLIGRAM, TIW
     Route: 065

REACTIONS (10)
  - Rheumatoid arthritis [Unknown]
  - Dyspepsia [Unknown]
  - Abdominal pain upper [Unknown]
  - Vitamin D deficiency [Unknown]
  - Arthralgia [Unknown]
  - Insomnia [Unknown]
  - Hypertension [Unknown]
  - Generalised anxiety disorder [Unknown]
  - Panic disorder [Unknown]
  - Pain [Unknown]
